FAERS Safety Report 5702464-X (Version None)
Quarter: 2008Q2

REPORT INFORMATION
  Report Type: 
  Country: None (occurrence: None)
  Receive Date: 20080410
  Receipt Date: 20080410
  Transmission Date: 20081010
  Serious: No
  Sender: FDA-Public Use
  Company Number: None

PATIENT
  Age: 36 Year
  Sex: Female
  Weight: 99.7913 kg

DRUGS (3)
  1. MUCINEX DM [Suspect]
     Indication: COUGH
     Dosage: 1 TABLET -NORMAL DOSE- EVERY 12 HOURS PO
     Route: 048
     Dates: start: 20080408, end: 20080409
  2. PAXIL [Concomitant]
  3. WELLBUTRIN XL [Concomitant]

REACTIONS (4)
  - DIZZINESS [None]
  - INCORRECT DOSE ADMINISTERED [None]
  - INNER EAR DISORDER [None]
  - SINUS CONGESTION [None]
